FAERS Safety Report 17857656 (Version 2)
Quarter: 2020Q3

REPORT INFORMATION
  Report Type: Spontaneous
  Country: US (occurrence: US)
  Receive Date: 20200604
  Receipt Date: 20200701
  Transmission Date: 20201103
  Serious: No
  Sender: FDA-Public Use
  Company Number: US-GLAXOSMITHKLINE-US2020091731

PATIENT
  Age: 68 Year
  Sex: Female

DRUGS (3)
  1. NASAL SPRAY [Concomitant]
     Active Substance: UNSPECIFIED INGREDIENT
     Indication: PRODUCT USED FOR UNKNOWN INDICATION
     Dosage: UNK
     Route: 065
  2. BREO ELLIPTA [Suspect]
     Active Substance: FLUTICASONE FUROATE\VILANTEROL TRIFENATATE
     Indication: CHEST PAIN
     Dosage: 1 PUFF(S), 1D
     Route: 055
     Dates: start: 202001
  3. BREO ELLIPTA [Suspect]
     Active Substance: FLUTICASONE FUROATE\VILANTEROL TRIFENATATE
     Indication: BACK PAIN

REACTIONS (8)
  - Back pain [Unknown]
  - Cough [Unknown]
  - Chest pain [Unknown]
  - Drug ineffective for unapproved indication [Unknown]
  - Dysphonia [Unknown]
  - Productive cough [Unknown]
  - Product complaint [Unknown]
  - Product use in unapproved indication [Unknown]

NARRATIVE: CASE EVENT DATE: 202002
